FAERS Safety Report 6187856-X (Version None)
Quarter: 2009Q2

REPORT INFORMATION
  Report Type: 
  Country: None (occurrence: None)
  Receive Date: 20090511
  Receipt Date: 20090511
  Transmission Date: 20091009
  Serious: Yes (Other)
  Sender: FDA-Public Use
  Company Number: None

PATIENT
  Sex: Male
  Weight: 83.9154 kg

DRUGS (1)
  1. VYTORIN [Suspect]
     Indication: LOW DENSITY LIPOPROTEIN INCREASED
     Dosage: 10/20 1 TABLET - PM 047
     Dates: start: 20090316, end: 20090423

REACTIONS (5)
  - ARTHRALGIA [None]
  - DIZZINESS [None]
  - HYPERAESTHESIA [None]
  - MIDDLE INSOMNIA [None]
  - SKIN WARM [None]
